FAERS Safety Report 24622435 (Version 1)
Quarter: 2024Q4

REPORT INFORMATION
  Report Type: Spontaneous
  Country: CO (occurrence: CO)
  Receive Date: 20241115
  Receipt Date: 20241115
  Transmission Date: 20250114
  Serious: Yes (Death, Hospitalization, Other)
  Sender: NOVO NORDISK
  Company Number: CO-NOVOPROD-1317197

PATIENT
  Age: 45 Year
  Sex: Male

DRUGS (2)
  1. NOVOSEVEN RT [Suspect]
     Active Substance: COAGULATION FACTOR VIIA RECOMBINANT HUMAN
     Indication: Retroperitoneal haematoma
  2. NOVOSEVEN RT [Suspect]
     Active Substance: COAGULATION FACTOR VIIA RECOMBINANT HUMAN
     Indication: Haemorrhage
     Dosage: UNK

REACTIONS (5)
  - Respiratory failure [Fatal]
  - Antiphospholipid syndrome [Unknown]
  - Thrombosis [Unknown]
  - Lung infiltration [Unknown]
  - Coagulation factor decreased [Unknown]
